FAERS Safety Report 6884598-X (Version None)
Quarter: 2010Q3

REPORT INFORMATION
  Report Type: 
  Country: None (occurrence: None)
  Receive Date: 20100729
  Receipt Date: 20070727
  Transmission Date: 20110219
  Serious: No
  Sender: FDA-Public Use
  Company Number: US-PFIZER INC-2007063105

PATIENT
  Sex: Female
  Weight: 95.25 kg

DRUGS (2)
  1. CELEBREX [Suspect]
     Indication: ARTHRITIS
  2. ANTIHYPERTENSIVES [Concomitant]

REACTIONS (1)
  - DYSPEPSIA [None]
